FAERS Safety Report 21874853 (Version 1)
Quarter: 2023Q1

REPORT INFORMATION
  Report Type: Spontaneous
  Country: US (occurrence: None)
  Receive Date: 20230117
  Receipt Date: 20230117
  Transmission Date: 20230417
  Serious: No
  Sender: FDA-Public Use
  Company Number: 2023A007325

PATIENT
  Age: 45 Year
  Sex: Female

DRUGS (1)
  1. FASENRA [Suspect]
     Active Substance: BENRALIZUMAB
     Dosage: UNKNOWN DOSAGE IN UNKNOWN FREQUENCY
     Route: 065
     Dates: start: 2019, end: 2021

REACTIONS (2)
  - Middle insomnia [Unknown]
  - Drug ineffective [Unknown]
